FAERS Safety Report 17411879 (Version 1)
Quarter: 2020Q1

REPORT INFORMATION
  Report Type: Spontaneous
  Country: US (occurrence: US)
  Receive Date: 20200129
  Receipt Date: 20200129
  Transmission Date: 20200409
  Serious: No
  Sender: FDA-Public Use
  Company Number: None

PATIENT
  Age: 80 Year
  Sex: Female

DRUGS (1)
  1. ENTECAVIR 1MG TAB( X30) [Suspect]
     Active Substance: ENTECAVIR
     Route: 048
     Dates: start: 201606

REACTIONS (3)
  - Abdominal discomfort [None]
  - Abdominal distension [None]
  - Therapy cessation [None]

NARRATIVE: CASE EVENT DATE: 20200119
